FAERS Safety Report 17096002 (Version 1)
Quarter: 2019Q4

REPORT INFORMATION
  Report Type: Spontaneous
  Country: GB (occurrence: GB)
  Receive Date: 20191202
  Receipt Date: 20191202
  Transmission Date: 20200122
  Serious: Yes (Other)
  Sender: FDA-Public Use
  Company Number: GB-JNJFOC-20190126045

PATIENT
  Age: 26 Year
  Sex: Female

DRUGS (9)
  1. COTRIMOXAZOLE [Suspect]
     Active Substance: SULFAMETHOXAZOLE\TRIMETHOPRIM
     Dosage: MONDAY, WEDNESDAY, FRIDAY TWICE A DAY
     Route: 065
  2. METHYLPREDNISOLONE. [Suspect]
     Active Substance: METHYLPREDNISOLONE
     Indication: PRODUCT USED FOR UNKNOWN INDICATION
     Route: 042
  3. SULFAMETHOXAZOLE AND TRIMETHOPRIM [Concomitant]
     Active Substance: SULFAMETHOXAZOLE\TRIMETHOPRIM
     Indication: PRODUCT USED FOR UNKNOWN INDICATION
     Route: 065
  4. PARACETAMOL [Suspect]
     Active Substance: ACETAMINOPHEN
     Indication: PRODUCT USED FOR UNKNOWN INDICATION
     Route: 065
  5. LEMTRADA [Suspect]
     Active Substance: ALEMTUZUMAB
     Indication: MULTIPLE SCLEROSIS
     Route: 041
     Dates: start: 2018
  6. ACYCLOVIR. [Suspect]
     Active Substance: ACYCLOVIR
     Indication: PRODUCT USED FOR UNKNOWN INDICATION
     Route: 065
  7. COTRIMOXAZOLE [Suspect]
     Active Substance: SULFAMETHOXAZOLE\TRIMETHOPRIM
     Indication: PRODUCT USED FOR UNKNOWN INDICATION
     Dosage: MONDAY, WEDNESDAY, FRIDAY TWICE A DAY
     Route: 065
  8. OMEPRAZOLE. [Suspect]
     Active Substance: OMEPRAZOLE
     Indication: PRODUCT USED FOR UNKNOWN INDICATION
     Route: 065
  9. CHLORPHENAMINE [Suspect]
     Active Substance: CHLORPHENIRAMINE MALEATE
     Indication: PRODUCT USED FOR UNKNOWN INDICATION
     Route: 048

REACTIONS (10)
  - Pruritus [Recovered/Resolved]
  - Rash [Recovered/Resolved]
  - Rash [Recovered/Resolved]
  - Rash [Recovered/Resolved]
  - Headache [Recovered/Resolved]
  - Chest discomfort [Recovered/Resolved]
  - Rash [Unknown]
  - Fatigue [Unknown]
  - Basedow^s disease [Unknown]
  - Rash [Recovered/Resolved]

NARRATIVE: CASE EVENT DATE: 20190107
